FAERS Safety Report 10445736 (Version 1)
Quarter: 2014Q3

REPORT INFORMATION
  Report Type: Spontaneous
  Country: FR (occurrence: FR)
  Receive Date: 20140910
  Receipt Date: 20140910
  Transmission Date: 20150326
  Serious: Yes (Death)
  Sender: FDA-Public Use
  Company Number: FR-BAYER-2014-129137

PATIENT
  Age: 94 Year
  Sex: Male

DRUGS (3)
  1. GENTAMICINE [Suspect]
     Active Substance: GENTAMICIN
     Dosage: UNK
     Route: 042
     Dates: start: 20140731
  2. ROCEPHINE [Suspect]
     Active Substance: CEFTRIAXONE SODIUM
     Dosage: 1 G, QD
     Route: 042
     Dates: start: 20140731
  3. CIFLOX [Suspect]
     Active Substance: CIPROFLOXACIN
     Indication: PROSTATITIS
     Dosage: UNK
     Route: 048
     Dates: start: 20140716, end: 20140731

REACTIONS (4)
  - Renal failure [Fatal]
  - Hepatic failure [Fatal]
  - Acute generalised exanthematous pustulosis [Fatal]
  - Pyrexia [Unknown]

NARRATIVE: CASE EVENT DATE: 20140731
